FAERS Safety Report 10661028 (Version 2)
Quarter: 2016Q1

REPORT INFORMATION
  Report Type: Report from Study
  Country: US (occurrence: US)
  Receive Date: 20141218
  Receipt Date: 20160122
  Transmission Date: 20160525
  Serious: Yes (Other)
  Sender: FDA-Public Use
  Company Number: US-AMGEN-USASP2014097968

PATIENT
  Age: 63 Year
  Sex: Female

DRUGS (2)
  1. ENBREL [Suspect]
     Active Substance: ETANERCEPT
     Indication: RHEUMATOID ARTHRITIS
     Dosage: 50 MG, QWK
     Route: 065
     Dates: start: 20100401
  2. PREDNISONE. [Concomitant]
     Active Substance: PREDNISONE
     Dosage: UNK

REACTIONS (6)
  - Pain [Unknown]
  - Papilloma viral infection [Not Recovered/Not Resolved]
  - Foot operation [Unknown]
  - Nasopharyngitis [Unknown]
  - Condition aggravated [Unknown]
  - Smear cervix abnormal [Not Recovered/Not Resolved]

NARRATIVE: CASE EVENT DATE: 2014
